FAERS Safety Report 5116040-3 (Version None)
Quarter: 2006Q3

REPORT INFORMATION
  Report Type: 
  Country: None (occurrence: None)
  Receive Date: 20060927
  Receipt Date: 20060314
  Transmission Date: 20061208
  Serious: No
  Sender: FDA-Public Use
  Company Number: US-BRISTOL-MYERS SQUIBB COMPANY-13316930

PATIENT
  Age: 4 Decade
  Sex: Female
  Weight: 91 kg

DRUGS (1)
  1. DEFINITY [Suspect]
     Indication: CARDIAC MURMUR
     Route: 040
     Dates: start: 20060228, end: 20060228

REACTIONS (6)
  - BACK PAIN [None]
  - DYSPNOEA [None]
  - HYPERTENSION [None]
  - LOSS OF CONSCIOUSNESS [None]
  - MALAISE [None]
  - NEUROLOGICAL EXAMINATION ABNORMAL [None]
